FAERS Safety Report 11573066 (Version 1)
Quarter: 2015Q3

REPORT INFORMATION
  Report Type: Spontaneous
  Country: US (occurrence: US)
  Receive Date: 20150916
  Receipt Date: 20150916
  Transmission Date: 20151125
  Serious: No
  Sender: FDA-Public Use
  Company Number: US-ELI_LILLY_AND_COMPANY-US200910006747

PATIENT
  Sex: Female

DRUGS (4)
  1. DAILY VITAMINS [Concomitant]
  2. ASPIRIN. [Concomitant]
     Active Substance: ASPIRIN
  3. FORTEO [Suspect]
     Active Substance: TERIPARATIDE
     Dates: start: 20081201
  4. FORTEO [Suspect]
     Active Substance: TERIPARATIDE
     Dosage: UNK, UNK

REACTIONS (4)
  - Blister [Unknown]
  - Skin exfoliation [Unknown]
  - Sunburn [Not Recovered/Not Resolved]
  - Erythema [Unknown]

NARRATIVE: CASE EVENT DATE: 200908
